FAERS Safety Report 4648875-5 (Version None)
Quarter: 2005Q2

REPORT INFORMATION
  Report Type: 
  Country: None (occurrence: None)
  Receive Date: 20050427
  Receipt Date: 20050409
  Transmission Date: 20051028
  Serious: Yes (Hospitalization, Other)
  Sender: FDA-Public Use
  Company Number: USA050188794

PATIENT
  Age: 89 Year
  Sex: Female

DRUGS (6)
  1. FORTEO [Suspect]
     Dates: start: 20040101
  2. FOSAMAX [Concomitant]
  3. APO-METOPROLOL (METOPROLOL TARTRATE) [Concomitant]
  4. CALCIUM CARBONATE [Concomitant]
  5. BENICAR [Concomitant]
  6. IRON [Concomitant]

REACTIONS (3)
  - CONSTIPATION [None]
  - DYSPNOEA [None]
  - RENAL CELL CARCINOMA STAGE UNSPECIFIED [None]
